FAERS Safety Report 5684298-8 (Version None)
Quarter: 2008Q1

REPORT INFORMATION
  Report Type: 
  Country: None (occurrence: None)
  Receive Date: 20080327
  Receipt Date: 20080327
  Transmission Date: 20080703
  Serious: Yes (Life-Threatening, Hospitalization)
  Sender: FDA-Public Use
  Company Number: None

PATIENT
  Sex: Female
  Weight: 86.1834 kg

DRUGS (2)
  1. GEODON [Suspect]
     Indication: SCHIZOPHRENIA
     Dates: start: 20070801, end: 20080120
  2. LOESTRIN 24 [Suspect]
     Indication: VAGINAL HAEMORRHAGE
     Dates: start: 20060901, end: 20070920

REACTIONS (1)
  - PULMONARY EMBOLISM [None]
